FAERS Safety Report 10559884 (Version 1)
Quarter: 2014Q4

REPORT INFORMATION
  Report Type: Spontaneous
  Country: US (occurrence: None)
  Receive Date: 20141031
  Receipt Date: 20141031
  Transmission Date: 20150529
  Serious: Yes (Hospitalization)
  Sender: FDA-Public Use
  Company Number: None

PATIENT
  Age: 49 Year
  Sex: Female
  Weight: 63.5 kg

DRUGS (1)
  1. BUTRANS [Suspect]
     Active Substance: BUPRENORPHINE
     Indication: PAIN
     Dosage: 1 PATCH  WEEKLY, APPLIED TO A SURFACE, USUALLY THE SKIN
     Dates: start: 20141027, end: 20141030

REACTIONS (2)
  - Condition aggravated [None]
  - Influenza [None]

NARRATIVE: CASE EVENT DATE: 20141027
